FAERS Safety Report 22013241 (Version 1)
Quarter: 2023Q1

REPORT INFORMATION
  Report Type: Spontaneous
  Country: FR (occurrence: FR)
  Receive Date: 20230220
  Receipt Date: 20230220
  Transmission Date: 20230417
  Serious: Yes (Other)
  Sender: FDA-Public Use
  Company Number: None

PATIENT
  Age: 59 Year
  Sex: Female
  Weight: 59 kg

DRUGS (1)
  1. VALGANCICLOVIR [Suspect]
     Active Substance: VALGANCICLOVIR
     Indication: Cytomegalovirus infection
     Dosage: UNK
     Route: 048
     Dates: start: 20221220, end: 20221222

REACTIONS (2)
  - Immune-mediated cytopenia [Not Recovered/Not Resolved]
  - Haemodynamic instability [Not Recovered/Not Resolved]

NARRATIVE: CASE EVENT DATE: 20221222
